FAERS Safety Report 8215270-1 (Version None)
Quarter: 2012Q1

REPORT INFORMATION
  Report Type: 
  Country: None (occurrence: None)
  Receive Date: 20120316
  Receipt Date: 20120201
  Transmission Date: 20120608
  Serious: Yes (Other)
  Sender: FDA-Public Use
  Company Number: CA-PFIZER INC-2012066141

PATIENT

DRUGS (23)
  1. PANTOPRAZOLE [Concomitant]
     Route: 064
  2. METOCLOPRAMIDE [Concomitant]
     Route: 064
  3. DEXTROSE 5% AND SODIUM CHLORIDE 0.45% IN PLASTIC CONTAINER [Concomitant]
     Dosage: UNK
     Route: 064
  4. ONDANSETRON [Suspect]
     Indication: HYPEREMESIS GRAVIDARUM
     Route: 064
  5. DIPHENHYDRAMINE [Concomitant]
     Dosage: 200 MG (50 MG, 1 IN 6 HR)
     Route: 064
  6. LACTULOSE [Concomitant]
     Route: 064
  7. CODEINE [Concomitant]
     Route: 064
  8. METHYLPREDNISOLONE [Concomitant]
     Route: 064
  9. METOCLOPRAMIDE [Concomitant]
     Route: 048
  10. CITALOPRAM [Concomitant]
     Route: 064
  11. INDOMETHACIN [Concomitant]
     Route: 064
  12. RANITIDINE [Concomitant]
     Route: 064
  13. OMEPRAZOLE [Concomitant]
     Route: 064
  14. ACETAMINOPHEN [Concomitant]
     Route: 064
  15. HYDROXYZINE [Concomitant]
     Dosage: 100 MG (25 MG,1 IN 6 HR)
     Route: 064
  16. CLOTRIMAZOLE [Concomitant]
     Route: 064
  17. GLYCERIN [Concomitant]
     Route: 064
  18. MULTI-VITAMINS [Concomitant]
     Route: 064
  19. HYDROMORPHONE [Concomitant]
     Route: 064
  20. DOMPERIDONE [Concomitant]
     Route: 064
  21. PREDNISONE [Concomitant]
     Route: 064
  22. THIAMINE [Concomitant]
     Dosage: 100 MG, UNK
     Route: 064
  23. GINGER [Concomitant]
     Route: 064

REACTIONS (2)
  - MATERNAL EXPOSURE TIMING UNSPECIFIED [None]
  - KIDNEY MALFORMATION [None]
